FAERS Safety Report 7220640-4 (Version None)
Quarter: 2011Q1

REPORT INFORMATION
  Report Type: 
  Country: None (occurrence: None)
  Receive Date: 20110111
  Receipt Date: 20110110
  Transmission Date: 20110831
  Serious: Yes (Hospitalization, Other)
  Sender: FDA-Public Use
  Company Number: BR-ABBOTT-10P-020-0689471-00

PATIENT
  Sex: Female
  Weight: 44 kg

DRUGS (2)
  1. HUMIRA [Suspect]
     Indication: CROHN'S DISEASE
     Dosage: INDUCTION DOSE: 160MG / 80MG/ 15 DAYS
     Route: 058
     Dates: start: 20100301, end: 20101101
  2. HUMIRA [Suspect]

REACTIONS (1)
  - ANAL FISTULA [None]
